FAERS Safety Report 8141061-6 (Version None)
Quarter: 2012Q1

REPORT INFORMATION
  Report Type: 
  Country: None (occurrence: None)
  Receive Date: 20120103
  Receipt Date: 20111012
  Transmission Date: 20120608
  Serious: No
  Sender: FDA-Public Use
  Company Number: AE-2011-002289

PATIENT
  Age: 52 Year
  Sex: Female
  Weight: 80.7403 kg

DRUGS (8)
  1. PRILOSEC [Concomitant]
  2. RIBAVIRIN [Concomitant]
  3. PEGASYS [Concomitant]
  4. CELEXA [Concomitant]
  5. INCIVEK [Suspect]
     Dosage: 2250 MG (750 MG,1 IN 8 HR),ORAL
     Route: 048
     Dates: start: 20110819
  6. SEROQUEL [Concomitant]
  7. KLONOPIN [Concomitant]
  8. ADDERALL (OBETROL) [Concomitant]

REACTIONS (3)
  - DEPRESSED MOOD [None]
  - HAEMOGLOBIN DECREASED [None]
  - BLOOD IRON INCREASED [None]
